FAERS Safety Report 5729754-9 (Version None)
Quarter: 2008Q2

REPORT INFORMATION
  Report Type: 
  Country: None (occurrence: None)
  Receive Date: 20080506
  Receipt Date: 20080409
  Transmission Date: 20081010
  Serious: No
  Sender: FDA-Public Use
  Company Number: US-BOEHRINGER INGELHEIM GMBH, GERMANY-2008-BP-05644BP

PATIENT
  Sex: Female

DRUGS (8)
  1. SPIRIVA [Suspect]
     Indication: EMPHYSEMA
     Route: 055
     Dates: start: 20060101
  2. SEREVENT [Concomitant]
  3. DIOVAN [Concomitant]
  4. ALLOPURINOL [Concomitant]
  5. NORVASC [Concomitant]
  6. ASPIRIN [Concomitant]
  7. ALBUTEROL [Concomitant]
  8. TRIAMTERENE [Concomitant]

REACTIONS (2)
  - DRY MOUTH [None]
  - MIDDLE INSOMNIA [None]
